FAERS Safety Report 12233874 (Version 1)
Quarter: 2016Q2

REPORT INFORMATION
  Report Type: Spontaneous
  Country: US (occurrence: US)
  Receive Date: 20160404
  Receipt Date: 20160404
  Transmission Date: 20160815
  Serious: Yes (Hospitalization)
  Sender: FDA-Public Use
  Company Number: US-AUROBINDO-AUR-APL-2016-04026

PATIENT
  Age: 44 Year
  Sex: Female

DRUGS (5)
  1. CLOZAPINE. [Interacting]
     Active Substance: CLOZAPINE
     Indication: PSYCHOTIC DISORDER
     Dosage: 500 MG NIGHTLY
     Route: 065
  2. METOPROLOL. [Suspect]
     Active Substance: METOPROLOL
     Indication: TACHYCARDIA
     Dosage: 50 MG, TWO TIMES A DAY
     Route: 065
  3. CLOZAPINE. [Interacting]
     Active Substance: CLOZAPINE
     Dosage: 350 MG NIGHTLY
     Route: 065
  4. RISPERIDONE. [Suspect]
     Active Substance: RISPERIDONE
     Indication: PSYCHOTIC DISORDER
     Dosage: 1 MG, TWO TIMES A DAY
     Route: 065
  5. DIVALPROEX 500MG [Interacting]
     Active Substance: DIVALPROEX SODIUM
     Indication: PSYCHOTIC DISORDER
     Dosage: 500 MG, EVERY MORNING, 1,000 MG NIGHTLY
     Route: 065

REACTIONS (8)
  - Myocarditis [Unknown]
  - Tachycardia [Unknown]
  - Somnolence [Unknown]
  - Pyrexia [Unknown]
  - Drug interaction [Unknown]
  - Atrial fibrillation [Unknown]
  - Pneumonia [Unknown]
  - Agitation [Unknown]
